FAERS Safety Report 4601586-4 (Version None)
Quarter: 2005Q1

REPORT INFORMATION
  Report Type: 
  Country: None (occurrence: None)
  Receive Date: 20050131
  Receipt Date: 20041101
  Transmission Date: 20050727
  Serious: No
  Sender: FDA-Public Use
  Company Number: 200418406US

PATIENT
  Age: 62 Year
  Sex: Female

DRUGS (4)
  1. TELITHROMYCIN (KETEK) TABLETS [Suspect]
     Indication: SINUS CONGESTION
     Dosage: 800 MG QD PO
     Route: 048
  2. PSEUDOEPHEDRINE HYDROCHLORIDE (SUDAFED) [Concomitant]
  3. IBUPROFEN [Concomitant]
  4. PENICILLIN [Concomitant]

REACTIONS (5)
  - ASTHENIA [None]
  - FATIGUE [None]
  - INFLUENZA LIKE ILLNESS [None]
  - MALAISE [None]
  - PAIN [None]
